FAERS Safety Report 9228540 (Version 1)
Quarter: 2013Q1

REPORT INFORMATION
  Report Type: Spontaneous
  Country: US (occurrence: None)
  Receive Date: 20121010
  Receipt Date: 20121010
  Transmission Date: 20140127
  Serious: Yes (Death)
  Sender: FDA-Public Use
  Company Number: 2012POI057500040

PATIENT
  Age: 50 Year
  Sex: Female

DRUGS (3)
  1. ROXICODONE [Suspect]
     Dates: end: 20051021
  2. XANAX [Suspect]
     Dates: end: 20051021
  3. OXYCONTIN [Suspect]
     Dates: end: 20051021

REACTIONS (1)
  - Intentional overdose [None]
